FAERS Safety Report 7729572-6 (Version None)
Quarter: 2011Q3

REPORT INFORMATION
  Report Type: 
  Country: None (occurrence: None)
  Receive Date: 20110906
  Receipt Date: 20110826
  Transmission Date: 20111222
  Serious: Yes (Hospitalization, Disabling)
  Sender: FDA-Public Use
  Company Number: US-BAYER-2011-011232

PATIENT
  Age: 18 Year
  Sex: Female
  Weight: 34 kg

DRUGS (16)
  1. PANTOPRAZOLE [Concomitant]
     Indication: GASTROOESOPHAGEAL REFLUX DISEASE
     Dosage: UNK
     Dates: start: 20090301
  2. SINGULAIR [Concomitant]
     Dosage: UNK
     Dates: start: 20090901
  3. PROTONIX [Concomitant]
     Dosage: UNK
     Dates: start: 20090901
  4. ZOLOFT [Concomitant]
     Dosage: UNK
     Dates: start: 20090306, end: 20090414
  5. NEXIUM [Concomitant]
     Dosage: 40 MG, UNK
  6. CARAFATE [Concomitant]
     Dosage: UNK
     Dates: start: 20090203
  7. ONDANSETRON [Concomitant]
     Dosage: UNK
     Dates: start: 20090309
  8. HYDROCODONE BITARTRATE AND ACETAMINOPHEN [Concomitant]
     Dosage: UNK
     Dates: start: 20091120
  9. WELCHOL [Concomitant]
     Dosage: UNK
     Dates: start: 20091130
  10. DESIPRAMIDE HCL [Concomitant]
     Dosage: UNK
     Dates: start: 20090901
  11. YASMIN [Suspect]
     Indication: CONTRACEPTION
     Dosage: UNK
     Dates: start: 20080701, end: 20090301
  12. ZANTAC [Concomitant]
     Dosage: 150 MG, UNK
     Dates: start: 20090108
  13. LEXAPRO [Concomitant]
     Indication: DEPRESSION
     Dosage: UNK
     Dates: start: 20090201
  14. PROTONIX [Concomitant]
     Dosage: UNK
     Dates: start: 20090306
  15. DICYCLOMINE [Concomitant]
     Dosage: UNK
     Dates: start: 20090914
  16. DROSPIRENONE AND ETHINYL ESTRADIOL [Suspect]
     Indication: CONTRACEPTION
     Dosage: UNK
     Dates: start: 20080701, end: 20090301

REACTIONS (12)
  - ABDOMINAL PAIN [None]
  - ANXIETY [None]
  - VOMITING [None]
  - WEIGHT DECREASED [None]
  - NAUSEA [None]
  - BILIARY DYSKINESIA [None]
  - UNEVALUABLE EVENT [None]
  - CHOLECYSTITIS CHRONIC [None]
  - PAIN [None]
  - GALLBLADDER DISORDER [None]
  - EMOTIONAL DISTRESS [None]
  - INJURY [None]
